FAERS Safety Report 7562549-2 (Version None)
Quarter: 2011Q2

REPORT INFORMATION
  Report Type: 
  Country: None (occurrence: None)
  Receive Date: 20110622
  Receipt Date: 20110615
  Transmission Date: 20111010
  Serious: Yes (Death, Hospitalization)
  Sender: FDA-Public Use
  Company Number: IT-CELGENEUS-083-50794-11062149

PATIENT
  Sex: Female

DRUGS (11)
  1. CARVEDILOL [Concomitant]
     Indication: ATRIAL FIBRILLATION
     Route: 065
  2. PREDNISONE [Concomitant]
     Route: 048
     Dates: end: 20101101
  3. RED BLOOD CELLS [Concomitant]
     Route: 065
     Dates: start: 20110419, end: 20110419
  4. PLATELETS [Concomitant]
     Route: 051
  5. ONCO-CARBIDE [Concomitant]
     Route: 048
     Dates: start: 20110301, end: 20110401
  6. PREDNISONE [Concomitant]
     Route: 048
     Dates: start: 20101101, end: 20110101
  7. COUMADIN [Concomitant]
     Indication: ATRIAL FIBRILLATION
     Route: 065
  8. RED BLOOD CELLS [Concomitant]
     Route: 065
     Dates: start: 20110422, end: 20110422
  9. VIDAZA [Suspect]
     Route: 051
     Dates: start: 20110505, end: 20110513
  10. ONCO-CARBIDE [Concomitant]
     Route: 048
     Dates: end: 20110301
  11. RED BLOOD CELLS [Concomitant]
     Route: 065
     Dates: start: 20110501, end: 20110501

REACTIONS (6)
  - INTRACRANIAL HAEMATOMA [None]
  - INFECTION [None]
  - CONFUSIONAL STATE [None]
  - HYPERTHERMIA [None]
  - FALL [None]
  - CHRONIC MYELOID LEUKAEMIA [None]
